FAERS Safety Report 6854604-7 (Version None)
Quarter: 2010Q3

REPORT INFORMATION
  Report Type: 
  Country: None (occurrence: None)
  Receive Date: 20100717
  Receipt Date: 20080215
  Transmission Date: 20110219
  Serious: No
  Sender: FDA-Public Use
  Company Number: US-PFIZER INC-2008001576

PATIENT
  Sex: Female
  Weight: 63.2 kg

DRUGS (2)
  1. CHANTIX [Suspect]
     Indication: SMOKING CESSATION THERAPY
     Dates: start: 20071229
  2. FIORICET [Concomitant]

REACTIONS (8)
  - ABNORMAL DREAMS [None]
  - FATIGUE [None]
  - FEAR [None]
  - FRUSTRATION [None]
  - INSOMNIA [None]
  - MIGRAINE [None]
  - SLEEP DISORDER [None]
  - SLEEP TALKING [None]
